FAERS Safety Report 23668458 (Version 1)
Quarter: 2024Q1

REPORT INFORMATION
  Report Type: Spontaneous
  Country: US (occurrence: US)
  Receive Date: 20240325
  Receipt Date: 20240325
  Transmission Date: 20240410
  Serious: No
  Sender: FDA-Public Use
  Company Number: US-BAXTER-2024BAX015304

PATIENT

DRUGS (2)
  1. NOREPINEPHRINE BITARTRATE [Suspect]
     Active Substance: NOREPINEPHRINE BITARTRATE
     Dosage: UNK
     Route: 042
  2. LEVOPHED [Suspect]
     Active Substance: NOREPINEPHRINE BITARTRATE
     Dosage: UNK
     Route: 041

REACTIONS (2)
  - Device failure [Unknown]
  - Blood pressure decreased [Recovered/Resolved]

NARRATIVE: CASE EVENT DATE: 20240308
